FAERS Safety Report 16735565 (Version 8)
Quarter: 2019Q4

REPORT INFORMATION
  Report Type: Report from Study
  Country: JP (occurrence: JP)
  Receive Date: 20190823
  Receipt Date: 20191113
  Transmission Date: 20200122
  Serious: Yes (Death, Hospitalization, Other)
  Sender: FDA-Public Use
  Company Number: JP-DSJP-DSJ-2018-103929

PATIENT

DRUGS (7)
  1. PROTON PUMP INHIBITORS [Concomitant]
     Active Substance: UNSPECIFIED INGREDIENT
     Indication: PRODUCT USED FOR UNKNOWN INDICATION
  2. EDOXABAN [Suspect]
     Active Substance: EDOXABAN TOSYLATE
     Dosage: 30 MG, QD
     Route: 048
     Dates: start: 20190406, end: 20190527
  3. EDOXABAN [Suspect]
     Active Substance: EDOXABAN TOSYLATE
     Dosage: 30 MG, QD
     Route: 048
     Dates: start: 20190617, end: 20190618
  4. EDOXABAN [Suspect]
     Active Substance: EDOXABAN TOSYLATE
     Dosage: 30 MG, QD
     Route: 048
     Dates: start: 20180208, end: 20190404
  5. EDOXABAN [Suspect]
     Active Substance: EDOXABAN TOSYLATE
     Indication: ATRIAL FIBRILLATION
     Dosage: 30 MG, QD
     Route: 048
     Dates: start: 20170330, end: 20180205
  6. HMG COA REDUCTASE INHIBITORS [Concomitant]
     Active Substance: UNSPECIFIED INGREDIENT
     Indication: PRODUCT USED FOR UNKNOWN INDICATION
  7. ANTIHYPERTENSIVES [Concomitant]
     Active Substance: UNSPECIFIED INGREDIENT
     Indication: PRODUCT USED FOR UNKNOWN INDICATION
     Dosage: UNK

REACTIONS (16)
  - Haemorrhage [Not Recovered/Not Resolved]
  - Lung adenocarcinoma recurrent [Fatal]
  - Metastases to spine [Not Recovered/Not Resolved]
  - Rectal haemorrhage [Unknown]
  - Lymphadenopathy [Unknown]
  - Metastases to lymph nodes [Fatal]
  - Metastases to lung [Fatal]
  - Lung adenocarcinoma recurrent [Fatal]
  - Rectal cancer [Recovered/Resolved]
  - Cerebral infarction [Not Recovered/Not Resolved]
  - Metastases to the mediastinum [Fatal]
  - Lung adenocarcinoma [Fatal]
  - Lung carcinoma cell type unspecified recurrent [Fatal]
  - Lung adenocarcinoma recurrent [Fatal]
  - Metastases to lymph nodes [Fatal]
  - Lung adenocarcinoma recurrent [Not Recovered/Not Resolved]

NARRATIVE: CASE EVENT DATE: 20171212
